FAERS Safety Report 4302049-6 (Version None)
Quarter: 2004Q1

REPORT INFORMATION
  Report Type: 
  Country: None (occurrence: None)
  Receive Date: 20040220
  Receipt Date: 20040217
  Transmission Date: 20041129
  Serious: Yes (Hospitalization)
  Sender: FDA-Public Use
  Company Number: STA-AE-04-MTX-063

PATIENT
  Age: 69 Year
  Sex: Male

DRUGS (6)
  1. METHOTREXATE [Suspect]
     Indication: POLYARTHRITIS
     Dosage: ORAL
     Route: 048
     Dates: end: 20031118
  2. PREDNISONE [Suspect]
     Dosage: ORAL
     Route: 048
  3. REMICADE [Suspect]
     Dosage: INTRAVENOUS
     Route: 042
     Dates: start: 20000615, end: 20031118
  4. TILCOTIL (TENOXICAM) [Concomitant]
  5. CACIT (CALCIUM CARBONATE/CITRIC ACID) [Concomitant]
  6. OMEPRAZOLE [Concomitant]

REACTIONS (2)
  - NOCARDIOSIS [None]
  - SKIN INFECTION [None]
